FAERS Safety Report 8796374 (Version 1)
Quarter: 2012Q4

REPORT INFORMATION
  Report Type: 
  Country: JP (occurrence: JP)
  Receive Date: 20120919
  Receipt Date: 20120919
  Transmission Date: 20130627
  Serious: Yes (Other)
  Sender: FDA-Public Use
  Company Number: JP-PFIZER INC-2012229601

PATIENT
  Age: 49 Year
  Sex: Male

DRUGS (1)
  1. CELECOX [Suspect]
     Dosage: 100 mg, 1x/day
     Route: 048
     Dates: start: 20120830, end: 20120830

REACTIONS (3)
  - Intentional drug misuse [Recovered/Resolved]
  - Rash generalised [Recovered/Resolved]
  - Blood pressure decreased [Recovered/Resolved]
